FAERS Safety Report 14031618 (Version 3)
Quarter: 2017Q4

REPORT INFORMATION
  Report Type: Spontaneous
  Country: JP (occurrence: JP)
  Receive Date: 20171003
  Receipt Date: 20171110
  Transmission Date: 20180321
  Serious: Yes (Other)
  Sender: FDA-Public Use
  Company Number: JP-ROCHE-2001342

PATIENT
  Age: 23 Year
  Sex: Male

DRUGS (3)
  1. MEPOLIZUMAB [Concomitant]
     Active Substance: MEPOLIZUMAB
     Indication: PRODUCT USED FOR UNKNOWN INDICATION
     Route: 065
  2. XOLAIR [Suspect]
     Active Substance: OMALIZUMAB
     Indication: ASTHMA
  3. XOLAIR [Suspect]
     Active Substance: OMALIZUMAB
     Indication: ASTHMA
     Route: 058

REACTIONS (3)
  - Eosinophilic granulomatosis with polyangiitis [Unknown]
  - Seasonal allergy [Unknown]
  - Blood immunoglobulin E increased [Unknown]
